FAERS Safety Report 16979252 (Version 2)
Quarter: 2020Q1

REPORT INFORMATION
  Report Type: Spontaneous
  Country: US (occurrence: US)
  Receive Date: 20191031
  Receipt Date: 20200204
  Transmission Date: 20200409
  Serious: No
  Sender: FDA-Public Use
  Company Number: US-HIKMA PHARMACEUTICALS USA INC.-US-H14001-19-04902

PATIENT
  Sex: Female

DRUGS (3)
  1. BOSENTAN. [Suspect]
     Active Substance: BOSENTAN
     Indication: CHEST PAIN
     Dosage: 25 MG OR 20 MG (PATIENT COULDN^T RECALL WHICH)
     Route: 048
     Dates: start: 201910, end: 201910
  2. NASACORT [Concomitant]
     Active Substance: TRIAMCINOLONE ACETONIDE
     Indication: PRODUCT USED FOR UNKNOWN INDICATION
  3. BOSENTAN. [Suspect]
     Active Substance: BOSENTAN
     Indication: SINUSITIS

REACTIONS (2)
  - Pain [Unknown]
  - Sinusitis [Unknown]
